FAERS Safety Report 4548692-0 (Version None)
Quarter: 2005Q1

REPORT INFORMATION
  Report Type: 
  Country: None (occurrence: None)
  Receive Date: 20050107
  Receipt Date: 20050107
  Transmission Date: 20050727
  Serious: Yes (Hospitalization)
  Sender: FDA-Public Use
  Company Number: None

PATIENT
  Age: 72 Year
  Sex: Female
  Weight: 70.3075 kg

DRUGS (5)
  1. ZOCOR [Suspect]
     Indication: HYPERCHOLESTEROLAEMIA
     Dosage: 80    QHS     ORAL
     Route: 048
     Dates: start: 20040601, end: 20041223
  2. ASPIRIN [Concomitant]
  3. TOPROL-XL [Concomitant]
  4. TEMAZEPAM [Concomitant]
  5. LISINOPRIL [Concomitant]

REACTIONS (2)
  - HEPATIC ENZYME INCREASED [None]
  - RHABDOMYOLYSIS [None]
